FAERS Safety Report 17404485 (Version 1)
Quarter: 2020Q1

REPORT INFORMATION
  Report Type: Spontaneous
  Country: FR (occurrence: FR)
  Receive Date: 20200211
  Receipt Date: 20200211
  Transmission Date: 20200409
  Serious: Yes (Disabling)
  Sender: FDA-Public Use
  Company Number: FR-ALLERGAN-2005446US

PATIENT
  Sex: Male
  Weight: 82 kg

DRUGS (5)
  1. TRUVADA [Suspect]
     Active Substance: EMTRICITABINE\TENOFOVIR DISOPROXIL FUMARATE
     Indication: HIV INFECTION
     Dosage: UNKNOWN
     Route: 048
     Dates: start: 20100420, end: 20171114
  2. PREZISTA [Suspect]
     Active Substance: DARUNAVIR ETHANOLATE
     Indication: HIV INFECTION
     Dosage: UNKNOWN
     Route: 048
     Dates: start: 20100420, end: 20171114
  3. GENVOYA [Suspect]
     Active Substance: COBICISTAT\ELVITEGRAVIR\EMTRICITABINE\TENOFOVIR ALAFENAMIDE FUMARATE
     Indication: HIV INFECTION
     Dosage: 1 DF, QD
     Route: 048
     Dates: start: 20171114, end: 20190521
  4. ESCITALOPRAM OXALATE - BP [Suspect]
     Active Substance: ESCITALOPRAM OXALATE
     Indication: STRESS
     Dosage: 5 MG, QD
     Route: 048
  5. NORVIR [Suspect]
     Active Substance: RITONAVIR
     Indication: HIV INFECTION
     Dosage: UNKNOWN
     Route: 048
     Dates: start: 20100420, end: 20171114

REACTIONS (3)
  - Groin pain [Not Recovered/Not Resolved]
  - Product use in unapproved indication [Unknown]
  - Osteonecrosis [Not Recovered/Not Resolved]

NARRATIVE: CASE EVENT DATE: 201903
